FAERS Safety Report 13056645 (Version 1)
Quarter: 2016Q4

REPORT INFORMATION
  Report Type: Spontaneous
  Country: US (occurrence: US)
  Receive Date: 20161222
  Receipt Date: 20161222
  Transmission Date: 20170207
  Serious: Yes (Hospitalization, Other)
  Sender: FDA-Public Use
  Company Number: US-ELI_LILLY_AND_COMPANY-US201612005344

PATIENT
  Age: 81 Year
  Sex: Male
  Weight: 65.76 kg

DRUGS (10)
  1. HUMALOG [Suspect]
     Active Substance: INSULIN LISPRO
     Indication: TYPE 2 DIABETES MELLITUS
     Dosage: UNK, UNKNOWN
     Route: 065
  2. NITRO                              /00003201/ [Concomitant]
     Active Substance: NITROGLYCERIN
  3. SIMVASTATIN. [Concomitant]
     Active Substance: SIMVASTATIN
  4. HUMALOG [Suspect]
     Active Substance: INSULIN LISPRO
     Dosage: 5-10 U, TWO OR THREE TIMES PER DAY
     Route: 065
     Dates: start: 201610
  5. ISOSORBIDE. [Concomitant]
     Active Substance: ISOSORBIDE
     Indication: BLOOD PRESSURE ABNORMAL
  6. PLAVIX [Concomitant]
     Active Substance: CLOPIDOGREL BISULFATE
  7. METOPROLOL. [Concomitant]
     Active Substance: METOPROLOL
  8. RANEXA [Concomitant]
     Active Substance: RANOLAZINE
  9. STOOL SOFTENER (DOCUSATE CALCIUM) [Concomitant]
     Active Substance: DOCUSATE CALCIUM
  10. ASPIRIN                            /00002701/ [Concomitant]
     Active Substance: ASPIRIN

REACTIONS (7)
  - Expired product administered [Unknown]
  - Weight decreased [Unknown]
  - Renal injury [Recovering/Resolving]
  - Weight decreased [Unknown]
  - Myocardial infarction [Unknown]
  - Myocardial infarction [Unknown]
  - Upper respiratory tract infection [Recovered/Resolved]

NARRATIVE: CASE EVENT DATE: 201501
